FAERS Safety Report 17412384 (Version 1)
Quarter: 2020Q1

REPORT INFORMATION
  Report Type: Spontaneous
  Country: GB (occurrence: GB)
  Receive Date: 20200212
  Receipt Date: 20200212
  Transmission Date: 20200409
  Serious: Yes (Disabling)
  Sender: FDA-Public Use
  Company Number: None

PATIENT
  Age: 61 Year
  Sex: Male

DRUGS (2)
  1. ANTI-HISTAMINES [Concomitant]
  2. LAMISIL [Suspect]
     Active Substance: TERBINAFINE HYDROCHLORIDE
     Indication: RASH
     Route: 048
     Dates: start: 20200121, end: 20200208

REACTIONS (6)
  - Malaise [None]
  - Livedo reticularis [None]
  - Influenza like illness [None]
  - Pain in extremity [None]
  - Lethargy [None]
  - Petechiae [None]

NARRATIVE: CASE EVENT DATE: 20200209
